FAERS Safety Report 8480435 (Version 3)
Quarter: 2013Q2

REPORT INFORMATION
  Report Type: Report from Study
  Country: AU (occurrence: AU)
  Receive Date: 20120328
  Receipt Date: 20130605
  Transmission Date: 20140414
  Serious: Yes (Death, Hospitalization, Other)
  Sender: FDA-Public Use
  Company Number: PHHY2012AU026303

PATIENT
  Age: 48 Year
  Sex: Male

DRUGS (6)
  1. CLOZARIL [Suspect]
     Indication: SCHIZOPHRENIA
     Dosage: 350 MG, UNK
     Route: 048
     Dates: start: 20040930
  2. CLOZARIL [Suspect]
     Dosage: UNK UKN, UNK
     Dates: end: 20130603
  3. VALPROATE SODIUM [Concomitant]
     Dosage: 1 G, BID
     Route: 048
  4. ASPIRIN [Concomitant]
     Dosage: 100 MG, IN MORNING
     Route: 048
  5. VITAMIN D [Concomitant]
     Dosage: ONE TABLET IN MORNING
     Route: 048
  6. BETAMIN [Concomitant]
     Dosage: 100 MG, IN MORNING
     Route: 048

REACTIONS (5)
  - Neoplasm malignant [Fatal]
  - Glioblastoma multiforme [Unknown]
  - Brain neoplasm [Unknown]
  - Neurological symptom [Unknown]
  - Cerebrovascular accident [Unknown]
